FAERS Safety Report 13026323 (Version 1)
Quarter: 2016Q4

REPORT INFORMATION
  Report Type: Spontaneous
  Country: US (occurrence: US)
  Receive Date: 20161214
  Receipt Date: 20161214
  Transmission Date: 20170207
  Serious: No
  Sender: FDA-Public Use
  Company Number: US-ASTRAZENECA-2016SF18252

PATIENT
  Age: 21724 Day
  Sex: Female
  Weight: 68 kg

DRUGS (1)
  1. SYMBICORT [Suspect]
     Active Substance: BUDESONIDE\FORMOTEROL FUMARATE DIHYDRATE
     Indication: ASTHMA
     Dosage: 160/4.5 MCG INHALER ONE PUFF TWICE PER DAY
     Route: 055
     Dates: start: 2015

REACTIONS (5)
  - Cough [Unknown]
  - Device issue [Unknown]
  - Off label use [Unknown]
  - Intentional product misuse [Unknown]
  - Asthma [Unknown]

NARRATIVE: CASE EVENT DATE: 20161102
